FAERS Safety Report 20653454 (Version 1)
Quarter: 2022Q1

REPORT INFORMATION
  Report Type: Spontaneous
  Country: US (occurrence: US)
  Receive Date: 20220330
  Receipt Date: 20220330
  Transmission Date: 20220423
  Serious: Yes (Other)
  Sender: FDA-Public Use
  Company Number: US-BAYER-2022A040276

PATIENT

DRUGS (1)
  1. GADAVIST [Suspect]
     Active Substance: GADOBUTROL
     Indication: Tinnitus
     Dosage: UNK, ONCE
     Route: 042

REACTIONS (4)
  - Headache [None]
  - Chest pain [None]
  - Chills [None]
  - Pain [None]

NARRATIVE: CASE EVENT DATE: 20220316
